FAERS Safety Report 17150820 (Version 3)
Quarter: 2021Q1

REPORT INFORMATION
  Report Type: Spontaneous
  Country: US (occurrence: US)
  Receive Date: 20191213
  Receipt Date: 20210301
  Transmission Date: 20210419
  Serious: No
  Sender: FDA-Public Use
  Company Number: US-SA-2019SA343502

PATIENT
  Age: 17 Year
  Sex: Female

DRUGS (1)
  1. DUPIXENT [Suspect]
     Active Substance: DUPILUMAB
     Indication: PRODUCT USED FOR UNKNOWN INDICATION
     Dosage: 200 MG/ 1.4 ML, QOW
     Route: 058
     Dates: start: 20191120

REACTIONS (2)
  - Cardiac valve disease [Unknown]
  - Migraine [Unknown]

NARRATIVE: CASE EVENT DATE: 20191205
